FAERS Safety Report 10778750 (Version 3)
Quarter: 2016Q2

REPORT INFORMATION
  Report Type: Report from Study
  Country: BR (occurrence: BR)
  Receive Date: 20150210
  Receipt Date: 20160509
  Transmission Date: 20160815
  Serious: Yes (Disabling, Other)
  Sender: FDA-Public Use
  Company Number: BR-ABBVIE-15K-020-1343938-00

PATIENT
  Age: 81 Year
  Sex: Female
  Weight: 42 kg

DRUGS (6)
  1. METHOTREXATE [Concomitant]
     Active Substance: METHOTREXATE
     Indication: RHEUMATOID ARTHRITIS
     Route: 048
     Dates: start: 20151222
  2. GLUCOSAMINE [Concomitant]
     Active Substance: GLUCOSAMINE
     Indication: ARTHRITIS
     Route: 048
     Dates: start: 2015
  3. ARTROTABS [Concomitant]
     Indication: PRODUCT USED FOR UNKNOWN INDICATION
     Dosage: ASCORBIC ACID + PYRIDOXINE + THIAMINE + ZINC + VITAMIN E +
     Route: 048
     Dates: start: 201408
  4. PREDNISONE. [Concomitant]
     Active Substance: PREDNISONE
     Indication: RHEUMATOID ARTHRITIS
     Route: 048
  5. HUMIRA [Suspect]
     Active Substance: ADALIMUMAB
     Indication: RHEUMATOID ARTHRITIS
     Route: 058
     Dates: start: 20130216, end: 2015
  6. FOLIC ACID. [Concomitant]
     Active Substance: FOLIC ACID
     Indication: ANAEMIA
     Route: 048
     Dates: start: 20151222

REACTIONS (10)
  - Pain [Unknown]
  - Abasia [Unknown]
  - Anaemia [Unknown]
  - Sciatica [Not Recovered/Not Resolved]
  - Arthralgia [Not Recovered/Not Resolved]
  - Fibromyalgia [Not Recovered/Not Resolved]
  - Pain in extremity [Unknown]
  - Psychiatric symptom [Unknown]
  - Back pain [Not Recovered/Not Resolved]
  - Neuritis [Recovered/Resolved]

NARRATIVE: CASE EVENT DATE: 201412
